FAERS Safety Report 6338878-7 (Version None)
Quarter: 2009Q3

REPORT INFORMATION
  Report Type: 
  Country: None (occurrence: None)
  Receive Date: 20090903
  Receipt Date: 20090825
  Transmission Date: 20100115
  Serious: Yes (Hospitalization, Other)
  Sender: FDA-Public Use
  Company Number: PHHY2009GB12896

PATIENT
  Sex: Male

DRUGS (2)
  1. EXELON [Suspect]
     Indication: AMNESIA
     Dosage: 4.6 MG/24H
     Route: 062
     Dates: start: 20090206
  2. QUETIAPINE [Concomitant]
     Indication: HALLUCINATION, VISUAL
     Dosage: 25 MG, UNK
     Route: 048
     Dates: start: 20080901

REACTIONS (7)
  - ABNORMAL BEHAVIOUR [None]
  - AGITATION [None]
  - CONFUSIONAL STATE [None]
  - HALLUCINATION [None]
  - HEADACHE [None]
  - PARANOIA [None]
  - TREATMENT NONCOMPLIANCE [None]
